FAERS Safety Report 9612785 (Version 1)
Quarter: 2013Q4

REPORT INFORMATION
  Report Type: Spontaneous
  Country: US (occurrence: None)
  Receive Date: 20131008
  Receipt Date: 20131008
  Transmission Date: 20140711
  Serious: Yes (Other)
  Sender: FDA-Public Use
  Company Number: DSU-2013-04719

PATIENT
  Age: 78 Year
  Sex: Female
  Weight: 40.82 kg

DRUGS (5)
  1. BENICAR [Suspect]
     Indication: HYPERTENSION
     Route: 048
  2. CELEBREX [Suspect]
     Indication: ARTHRITIS
     Dosage: 2 DOSAGE FORMS (1 DOSAGE FORMS, BID)
     Dates: start: 201306, end: 2013
  3. PREDNISONE [Suspect]
     Indication: PAIN
  4. BYSTOLIC [Suspect]
     Indication: HYPERTENSION
  5. CIPRO (CIPROFLOXACIN) (CIPROFLOXACIN) [Concomitant]

REACTIONS (7)
  - Cataract operation [None]
  - Blood pressure increased [None]
  - Yellow skin [None]
  - Local swelling [None]
  - Local swelling [None]
  - Erythema [None]
  - Feeling hot [None]
